FAERS Safety Report 11472244 (Version 2)
Quarter: 2016Q2

REPORT INFORMATION
  Report Type: Spontaneous
  Country: US (occurrence: US)
  Receive Date: 20150908
  Receipt Date: 20160607
  Transmission Date: 20160815
  Serious: No
  Sender: FDA-Public Use
  Company Number: US-SA-2015SA083786

PATIENT
  Age: 65 Year
  Sex: Male

DRUGS (8)
  1. LEVEMIR [Concomitant]
     Active Substance: INSULIN DETEMIR
  2. TOUJEO [Suspect]
     Active Substance: INSULIN GLARGINE
     Indication: TYPE 1 DIABETES MELLITUS
     Dosage: DOSE:24 UNIT(S)
     Route: 065
     Dates: start: 201506
  3. APIDRA [Concomitant]
     Active Substance: INSULIN GLULISINE
  4. SOLOSTAR [Concomitant]
     Active Substance: DEVICE
     Indication: TYPE 1 DIABETES MELLITUS
     Route: 065
     Dates: start: 201506
  5. HUMALOG [Concomitant]
     Active Substance: INSULIN LISPRO
     Dates: start: 2004
  6. BGSTAR METER [Concomitant]
     Active Substance: DEVICE
  7. LANTUS [Concomitant]
     Active Substance: INSULIN GLARGINE
     Dosage: DOSE: 2
     Dates: start: 2004, end: 2015
  8. HUMULIN N [Concomitant]
     Active Substance: INSULIN HUMAN

REACTIONS (1)
  - Blood glucose increased [Recovered/Resolved]

NARRATIVE: CASE EVENT DATE: 201506
